FAERS Safety Report 6989010-8 (Version None)
Quarter: 2010Q3

REPORT INFORMATION
  Report Type: 
  Country: None (occurrence: None)
  Receive Date: 20100916
  Receipt Date: 20090828
  Transmission Date: 20110219
  Serious: Yes (Hospitalization)
  Sender: FDA-Public Use
  Company Number: JP-PFIZER INC-2009234764

PATIENT
  Sex: Male
  Weight: 76 kg

DRUGS (18)
  1. PREGABALIN [Suspect]
     Indication: DIABETIC NEUROPATHY
     Dosage: 75 MG, 2X/DAY
     Route: 048
     Dates: start: 20090408, end: 20090513
  2. PREGABALIN [Suspect]
     Dosage: 75 MG, 2X/DAY
     Route: 048
     Dates: start: 20081119, end: 20081126
  3. PREGABALIN [Suspect]
     Dosage: 150 MG, 2X/DAY
     Route: 048
     Dates: start: 20081126, end: 20081203
  4. PREGABALIN [Suspect]
     Dosage: 225 MG, 2X/DAY
     Route: 048
     Dates: start: 20081203, end: 20090217
  5. PREGABALIN [Suspect]
     Dosage: 150 MG, 2X/DAY
     Route: 048
     Dates: start: 20090218, end: 20090408
  6. NOVORAPID [Concomitant]
     Indication: TYPE 2 DIABETES MELLITUS
     Dosage: UNK
     Route: 058
     Dates: start: 20080508
  7. AMLODIPINE BESYLATE [Concomitant]
     Indication: HYPERTENSION
     Dosage: UNK
     Route: 048
     Dates: start: 20080827
  8. LANSOPRAZOLE [Concomitant]
     Indication: REFLUX OESOPHAGITIS
     Dosage: UNK
     Route: 048
     Dates: start: 20080508
  9. ACTOS [Concomitant]
     Indication: TYPE 2 DIABETES MELLITUS
     Dosage: UNK
     Route: 048
     Dates: start: 20090529
  10. LIPITOR [Concomitant]
     Indication: HYPERLIPIDAEMIA
  11. BASEN [Concomitant]
     Indication: TYPE 2 DIABETES MELLITUS
     Dosage: UNK
     Route: 048
     Dates: start: 20060510
  12. JUVELA [Concomitant]
     Indication: HYPERLIPIDAEMIA
     Dosage: UNK
     Route: 048
     Dates: start: 20080508
  13. SELBEX [Concomitant]
     Dosage: UNK
     Route: 048
     Dates: start: 20060510
  14. SANCOBA [Concomitant]
     Indication: ASTHENOPIA
     Dosage: UNK
     Route: 047
     Dates: start: 20050501
  15. PRORANON [Concomitant]
     Dosage: UNK
     Route: 047
     Dates: start: 20050501
  16. XALATAN [Concomitant]
     Indication: GLAUCOMA
     Dosage: UNK
     Route: 047
     Dates: start: 20050501
  17. FLUMETHOLON [Concomitant]
     Indication: IRITIS
     Dosage: UNK
     Route: 047
     Dates: start: 20081119
  18. GOSHAJINKIGAN [Concomitant]
     Dosage: UNK
     Route: 048
     Dates: start: 20080508

REACTIONS (2)
  - ARTERIOSCLEROSIS OBLITERANS [None]
  - MYOCARDIAL ISCHAEMIA [None]
